FAERS Safety Report 13508680 (Version 1)
Quarter: 2017Q2

REPORT INFORMATION
  Report Type: Spontaneous
  Country: US (occurrence: US)
  Receive Date: 20170503
  Receipt Date: 20170503
  Transmission Date: 20170830
  Serious: No
  Sender: FDA-Public Use
  Company Number: US-ASTRAZENECA-2016SF06866

PATIENT
  Sex: Male
  Weight: 130.6 kg

DRUGS (8)
  1. VITAMIN C AND CALCIUM CITRATE [Concomitant]
     Indication: GASTRIC ULCER SURGERY
     Route: 048
  2. SIMVASTATIN. [Concomitant]
     Active Substance: SIMVASTATIN
     Route: 048
  3. LISINOPRIL. [Concomitant]
     Active Substance: LISINOPRIL
     Route: 048
  4. BYDUREON [Suspect]
     Active Substance: EXENATIDE
     Indication: TYPE 2 DIABETES MELLITUS
     Route: 058
  5. ACTOPLUS MET XL [Concomitant]
     Route: 048
  6. CALCIUM [Concomitant]
     Active Substance: CALCIUM
     Indication: GASTRIC ULCER SURGERY
     Route: 048
  7. MULTIVITAMIN [Concomitant]
     Active Substance: VITAMINS
     Indication: GASTRIC ULCER SURGERY
     Route: 048
  8. GLIMEPIRIDE. [Concomitant]
     Active Substance: GLIMEPIRIDE
     Route: 065

REACTIONS (1)
  - Injection site nodule [Unknown]
